FAERS Safety Report 26028118 (Version 2)
Quarter: 2025Q4

REPORT INFORMATION
  Report Type: Spontaneous
  Country: US (occurrence: None)
  Receive Date: 20251111
  Receipt Date: 20251231
  Transmission Date: 20260119
  Serious: No
  Sender: INCYTE
  Company Number: US-INCYTE CORPORATION-2025IN012132

PATIENT
  Age: 67 Year
  Weight: 85.986 kg

DRUGS (1)
  1. JAKAFI [Suspect]
     Active Substance: RUXOLITINIB
     Indication: Essential thrombocythaemia
     Dosage: 5 MILLIGRAM, BID
     Route: 061

REACTIONS (2)
  - Product commingling [Unknown]
  - Off label use [Unknown]
